FAERS Safety Report 14943316 (Version 1)
Quarter: 2018Q2

REPORT INFORMATION
  Report Type: Spontaneous
  Country: IT (occurrence: IT)
  Receive Date: 20180528
  Receipt Date: 20180528
  Transmission Date: 20180711
  Serious: Yes (Hospitalization)
  Sender: FDA-Public Use
  Company Number: IT-ALLERGAN-1827901US

PATIENT
  Age: 55 Year
  Sex: Male

DRUGS (3)
  1. TAVOR (LORAZEPAM) [Concomitant]
     Active Substance: LORAZEPAM
     Indication: ANXIETY
     Dosage: 2.5 MG, UNK
     Route: 048
     Dates: start: 20150101
  2. ALCOVER [Concomitant]
     Active Substance: SODIUM OXYBATE
     Indication: ALCOHOLISM
     Dosage: 1 DF, UNK
     Route: 048
     Dates: start: 20150101
  3. ACAMPROSATE CALCIUM - BP [Suspect]
     Active Substance: ACAMPROSATE CALCIUM
     Indication: PETIT MAL EPILEPSY
     Dosage: 333 MG SIX TIMES A DAY
     Route: 048
     Dates: start: 20150101, end: 20180430

REACTIONS (3)
  - Syncope [Recovered/Resolved]
  - Epilepsy [Recovered/Resolved]
  - Off label use [Unknown]

NARRATIVE: CASE EVENT DATE: 20180430
